FAERS Safety Report 8999813 (Version 2)
Quarter: 2013Q1

REPORT INFORMATION
  Report Type: Spontaneous
  Country: US (occurrence: US)
  Receive Date: 20130102
  Receipt Date: 20130122
  Transmission Date: 20140127
  Serious: No
  Sender: FDA-Public Use
  Company Number: US-009507513-1212USA011178

PATIENT
  Age: 42 Year
  Sex: Female

DRUGS (2)
  1. MAXALT [Suspect]
     Indication: MIGRAINE
     Dosage: 10 MG, QD
     Route: 048
     Dates: start: 20121125, end: 20121125
  2. SYNTHROID [Concomitant]

REACTIONS (1)
  - Rash generalised [Recovering/Resolving]
